FAERS Safety Report 8513836-2 (Version None)
Quarter: 2012Q3

REPORT INFORMATION
  Report Type: 
  Country: None (occurrence: None)
  Receive Date: 20120717
  Receipt Date: 20120706
  Transmission Date: 20120928
  Serious: Yes (Death)
  Sender: FDA-Public Use
  Company Number: IT-GENZYME-POMP-1002145

PATIENT
  Age: 2 Year
  Sex: Female

DRUGS (1)
  1. MYOZYME [Suspect]
     Indication: GLYCOGEN STORAGE DISEASE TYPE II
     Dosage: UNK
     Route: 042
     Dates: end: 20120229

REACTIONS (4)
  - HYPERTROPHIC CARDIOMYOPATHY [None]
  - ACUTE RESPIRATORY FAILURE [None]
  - RESPIRATORY TRACT INFECTION [None]
  - LEFT VENTRICULAR DYSFUNCTION [None]
